FAERS Safety Report 8857786 (Version 3)
Quarter: 2012Q4

REPORT INFORMATION
  Report Type: 
  Country: JP (occurrence: JP)
  Receive Date: 20121024
  Receipt Date: 20121113
  Transmission Date: 20130627
  Serious: Yes (Life-Threatening)
  Sender: FDA-Public Use
  Company Number: JP-AMGEN-JPNSP2012067570

PATIENT
  Age: 61 Year
  Sex: Male
  Weight: 71 kg

DRUGS (6)
  1. RANMARK [Suspect]
     Indication: METASTASES TO BONE
     Dosage: 120 mg, one time dose
     Route: 058
     Dates: start: 20120913, end: 20120913
  2. RANMARK [Suspect]
     Indication: LUNG NEOPLASM MALIGNANT
  3. ONETAXOTERE [Suspect]
     Indication: LUNG NEOPLASM MALIGNANT
     Dosage: 100 mg, qd
     Route: 041
     Dates: start: 20120914, end: 20120914
  4. GRANISETRON [Concomitant]
     Indication: ANTIEMETIC SUPPORTIVE CARE
     Dosage: 3 mug, qd
     Route: 041
     Dates: start: 20120914, end: 20120914
  5. D-ALFA [Concomitant]
     Indication: HYPOCALCAEMIA
     Dosage: 1 mug, qd
     Route: 048
     Dates: start: 20120912, end: 20120928
  6. OXYCONTIN [Concomitant]
     Indication: PAIN
     Dosage: 5 mg, bid
     Route: 048
     Dates: start: 20120912, end: 20120918

REACTIONS (1)
  - Pathological fracture [Not Recovered/Not Resolved]
